FAERS Safety Report 7142872-6 (Version None)
Quarter: 2010Q4

REPORT INFORMATION
  Report Type: 
  Country: None (occurrence: None)
  Receive Date: 20101207
  Receipt Date: 20101110
  Transmission Date: 20110411
  Serious: Yes (Other)
  Sender: FDA-Public Use
  Company Number: NL-AMGEN-NLDSP2010005229

PATIENT

DRUGS (2)
  1. ENBREL [Suspect]
     Indication: ARTHRITIS
     Dosage: UNK
     Route: 058
     Dates: start: 20080101
  2. ENBREL [Suspect]
     Indication: COLITIS

REACTIONS (1)
  - OSTEODYSTROPHY [None]
